FAERS Safety Report 7471738-7 (Version None)
Quarter: 2011Q2

REPORT INFORMATION
  Report Type: 
  Country: None (occurrence: None)
  Receive Date: 20110511
  Receipt Date: 20100315
  Transmission Date: 20111010
  Serious: Yes (Other)
  Sender: FDA-Public Use
  Company Number: A0850238A

PATIENT
  Age: 52 Year
  Sex: Female
  Weight: 54.5 kg

DRUGS (4)
  1. TYKERB [Suspect]
     Indication: BREAST CANCER
     Dosage: 5TAB PER DAY
     Route: 048
     Dates: start: 20100228
  2. XELODA [Concomitant]
  3. OXYCODONE [Concomitant]
  4. GABAPENTIN [Concomitant]

REACTIONS (8)
  - ASPARTATE AMINOTRANSFERASE ABNORMAL [None]
  - VOMITING [None]
  - PAIN [None]
  - DIARRHOEA [None]
  - FATIGUE [None]
  - CARBOHYDRATE ANTIGEN 27.29 INCREASED [None]
  - ALANINE AMINOTRANSFERASE ABNORMAL [None]
  - NAUSEA [None]
